FAERS Safety Report 24309980 (Version 2)
Quarter: 2025Q1

REPORT INFORMATION
  Report Type: Spontaneous
  Country: US (occurrence: US)
  Receive Date: 20240912
  Receipt Date: 20250117
  Transmission Date: 20250409
  Serious: Yes (Hospitalization, Other)
  Sender: AUROBINDO
  Company Number: US-MLMSERVICE-20240110-4720788-1

PATIENT
  Age: 15 Year
  Sex: Male

DRUGS (4)
  1. RISPERIDONE [Suspect]
     Active Substance: RISPERIDONE
     Indication: Mania
     Dosage: 1 MILLIGRAM, ONCE A DAY
     Route: 048
  2. RISPERIDONE [Suspect]
     Active Substance: RISPERIDONE
     Indication: Psychotic disorder
  3. HALOPERIDOL [Suspect]
     Active Substance: HALOPERIDOL
     Indication: Mania
     Route: 048
  4. HALOPERIDOL [Suspect]
     Active Substance: HALOPERIDOL
     Indication: Psychotic disorder
     Route: 030

REACTIONS (2)
  - Neuroleptic malignant syndrome [Recovering/Resolving]
  - Catatonia [Recovering/Resolving]
